FAERS Safety Report 6688899-X (Version None)
Quarter: 2010Q2

REPORT INFORMATION
  Report Type: 
  Country: None (occurrence: None)
  Receive Date: 20100420
  Receipt Date: 20100414
  Transmission Date: 20101027
  Serious: Yes (Hospitalization)
  Sender: FDA-Public Use
  Company Number: US-JNJFOC-20100105707

PATIENT
  Age: 50 Year
  Sex: Male
  Weight: 113.4 kg

DRUGS (3)
  1. EXTRA STRENGTH TYLENOL [Suspect]
     Indication: PAIN IN EXTREMITY
     Dosage: 1000 MG EVERY 4-6 HOURS
     Route: 048
  2. EXTRA STRENGTH TYLENOL [Suspect]
     Indication: MUSCULOSKELETAL PAIN
     Dosage: 1000 MG EVERY 4-6 HOURS
     Route: 048
  3. EXTRA STRENGTH TYLENOL [Suspect]
     Indication: TOOTHACHE
     Dosage: 1000 MG EVERY 4-6 HOURS
     Route: 048

REACTIONS (2)
  - CHEST PAIN [None]
  - PRODUCT ODOUR ABNORMAL [None]
